FAERS Safety Report 13163713 (Version 2)
Quarter: 2017Q2

REPORT INFORMATION
  Report Type: Report from Study
  Country: US (occurrence: US)
  Receive Date: 20170130
  Receipt Date: 20170410
  Transmission Date: 20170830
  Serious: Yes (Other)
  Sender: FDA-Public Use
  Company Number: PHEH2017US002261

PATIENT
  Sex: Male

DRUGS (1)
  1. VOTRIENT [Suspect]
     Active Substance: PAZOPANIB HYDROCHLORIDE
     Indication: PRODUCT USED FOR UNKNOWN INDICATION
     Dosage: UNK
     Route: 065
     Dates: start: 20170104

REACTIONS (14)
  - Fatigue [Unknown]
  - Diabetes mellitus [Unknown]
  - Malignant neoplasm progression [Unknown]
  - Diarrhoea [Unknown]
  - Dyspnoea [Unknown]
  - Malaise [Unknown]
  - Hyperhidrosis [Unknown]
  - Lethargy [Unknown]
  - Nausea [Unknown]
  - Metastases to spine [Unknown]
  - Vomiting [Unknown]
  - Metastases to lung [Unknown]
  - Depression [Unknown]
  - Hypoaesthesia [Unknown]
